FAERS Safety Report 18934918 (Version 2)
Quarter: 2021Q1

REPORT INFORMATION
  Report Type: Spontaneous
  Country: US (occurrence: US)
  Receive Date: 20210224
  Receipt Date: 20210301
  Transmission Date: 20210420
  Serious: Yes (Other)
  Sender: FDA-Public Use
  Company Number: US-PFIZER INC-2021164720

PATIENT
  Age: 44 Year
  Sex: Male

DRUGS (2)
  1. DOXORUBICIN HCL [Suspect]
     Active Substance: DOXORUBICIN HYDROCHLORIDE
     Indication: NEOPLASM MALIGNANT
     Dosage: SINGLE DOSE WITHIN 2 WEEKS
  2. CARVEDILOL. [Concomitant]
     Active Substance: CARVEDILOL
     Indication: NEOPLASM MALIGNANT

REACTIONS (1)
  - Cardiomyopathy [Unknown]
